FAERS Safety Report 9078561 (Version 1)
Quarter: 2013Q1

REPORT INFORMATION
  Report Type: Spontaneous
  Country: US (occurrence: US)
  Receive Date: 20130130
  Receipt Date: 20130130
  Transmission Date: 20140127
  Serious: Yes (Death)
  Sender: FDA-Public Use
  Company Number: US-JNJFOC-20130113584

PATIENT
  Age: 80 Year
  Sex: Male

DRUGS (4)
  1. XARELTO [Suspect]
     Indication: CEREBROVASCULAR ACCIDENT PROPHYLAXIS
     Route: 048
     Dates: start: 201111
  2. XARELTO [Suspect]
     Indication: ATRIAL FIBRILLATION
     Route: 048
     Dates: start: 201111
  3. ASPIRIN [Concomitant]
     Indication: STENT PLACEMENT
     Route: 065
  4. PLAVIX [Concomitant]
     Indication: STENT PLACEMENT
     Route: 065

REACTIONS (1)
  - Cerebrovascular accident [Fatal]
